FAERS Safety Report 7526638-0 (Version None)
Quarter: 2011Q2

REPORT INFORMATION
  Report Type: 
  Country: None (occurrence: None)
  Receive Date: 20110606
  Receipt Date: 20110512
  Transmission Date: 20111010
  Serious: Yes (Hospitalization, Other)
  Sender: FDA-Public Use
  Company Number: US-BAYER-201036938NA

PATIENT
  Age: 43 Year
  Sex: Female
  Weight: 65.76 kg

DRUGS (36)
  1. LEVAQUIN [Concomitant]
  2. ARTHRITIS MEDICATION (NOS) [Concomitant]
  3. PREVACID [Concomitant]
     Indication: GASTROOESOPHAGEAL REFLUX DISEASE
  4. LOVENOX [Concomitant]
  5. VALIUM [Concomitant]
  6. TETRACYCLINE [Concomitant]
  7. YASMIN [Suspect]
     Indication: PREMENSTRUAL SYNDROME
  8. OXYCONTIN [Concomitant]
  9. LYRICA [Concomitant]
  10. ZOLPIDEM [Concomitant]
  11. PROPOX-N [Concomitant]
  12. XANAX [Concomitant]
  13. ZOFRAN [Concomitant]
  14. YAZ [Suspect]
     Indication: MENORRHAGIA
     Dosage: 1 TAB / DAY
     Route: 048
     Dates: start: 20070401, end: 20071001
  15. HYZAAR [Concomitant]
     Indication: HYPERTENSION
     Dosage: DAILY
  16. TOPROL-XL [Concomitant]
     Indication: HYPERTENSION
     Dosage: DAILY
  17. AMBIEN [Concomitant]
     Indication: SLEEP DISORDER
     Dosage: DAILY
  18. COUMADIN [Concomitant]
  19. DIFLUCAN [Concomitant]
  20. VITAMIN B-12 [Concomitant]
  21. CASOFUNGIN [Concomitant]
  22. PROZAC [Concomitant]
     Indication: ANXIETY
  23. PROZAC [Concomitant]
     Indication: DEPRESSION
  24. ZETIA [Concomitant]
     Indication: BLOOD CHOLESTEROL INCREASED
     Dosage: 10 MG, HS
  25. TRICOR [Concomitant]
     Indication: BLOOD CHOLESTEROL INCREASED
  26. PHENERGAN HCL [Concomitant]
     Indication: PAIN
  27. ROXICODONE [Concomitant]
  28. COMINOX [Concomitant]
  29. ULTRAM [Concomitant]
  30. NEXIUM [Concomitant]
  31. YASMIN [Suspect]
     Indication: MENORRHAGIA
     Dosage: 1 TAB / DAY
     Route: 048
     Dates: start: 20060201, end: 20070101
  32. FLUOXETINE HCL [Concomitant]
  33. INSULIN [Concomitant]
     Indication: TYPE 2 DIABETES MELLITUS
     Dosage: DRIP
  34. GLUCOPHAGE [Concomitant]
     Indication: DIABETES MELLITUS
     Dosage: 500 MG, QD
  35. YAZ [Suspect]
     Indication: PREMENSTRUAL SYNDROME
     Dosage: 1 TAB / DAY
     Dates: start: 20081001, end: 20090108
  36. TYGACIL [Concomitant]

REACTIONS (15)
  - MUSCLE ATROPHY [None]
  - ENCEPHALOPATHY [None]
  - SPLENIC INFARCTION [None]
  - SMALL INTESTINAL RESECTION [None]
  - COMA [None]
  - HEPATECTOMY [None]
  - AMNESIA [None]
  - AORTIC THROMBOSIS [None]
  - CHOLECYSTECTOMY [None]
  - CHOLECYSTITIS CHRONIC [None]
  - SKIN GRAFT [None]
  - HEPATIC INFARCTION [None]
  - THROMBOSIS [None]
  - SPLENECTOMY [None]
  - PAIN [None]
